FAERS Safety Report 18057116 (Version 1)
Quarter: 2020Q3

REPORT INFORMATION
  Report Type: Spontaneous
  Country: CA (occurrence: CA)
  Receive Date: 20200722
  Receipt Date: 20200722
  Transmission Date: 20201103
  Serious: Yes (Other)
  Sender: FDA-Public Use
  Company Number: CA-ASCEND THERAPEUTICS US, LLC-2087631

PATIENT
  Sex: Female

DRUGS (19)
  1. ACETAMINOPHEN (PARACETAMOL), UNKNOWN, UNKNOWN?INDICATION FOR USE: PAIN [Suspect]
     Active Substance: ACETAMINOPHEN
     Route: 065
  2. BREXPIPRAZOLE (BREXPIPRAZOLE), UNKNOWN [Suspect]
     Active Substance: BREXPIPRAZOLE
     Route: 065
  3. RANITIDINE HYDROCHLORIDE. [Suspect]
     Active Substance: RANITIDINE HYDROCHLORIDE
     Route: 065
  4. CLOTRIMAZOLE. [Suspect]
     Active Substance: CLOTRIMAZOLE
     Route: 065
  5. CLOZAPINE. [Suspect]
     Active Substance: CLOZAPINE
     Route: 065
  6. INFLUENZA VIRUS VACCINE (INFLUENZA VACCINE), UNKNOWN [Suspect]
     Active Substance: INFLUENZA VIRUS VACCINE
     Route: 065
  7. OLANZAPINE. [Suspect]
     Active Substance: OLANZAPINE
     Route: 065
  8. ESTROGEL [Suspect]
     Active Substance: ESTRADIOL
     Indication: PRODUCT USED FOR UNKNOWN INDICATION
     Route: 067
  9. ESTROGEL [Suspect]
     Active Substance: ESTRADIOL
  10. ARIPIPRAZOLE. [Suspect]
     Active Substance: ARIPIPRAZOLE
     Route: 065
  11. MINT ZOPICLONE (ZOPICLONE){ UNKNOWN [Suspect]
     Active Substance: ZOPICLONE
     Route: 065
  12. ALUMINUM HYDROXIDE. [Suspect]
     Active Substance: ALUMINUM HYDROXIDE
     Route: 048
  13. CLOZAPINE. [Suspect]
     Active Substance: CLOZAPINE
     Route: 065
  14. DIVALPROEX SODIUM. [Suspect]
     Active Substance: DIVALPROEX SODIUM
     Route: 065
  15. PREMARIN [Suspect]
     Active Substance: ESTROGENS, CONJUGATED
     Route: 061
  16. ACETAMINOPHEN (PARACETAMOL), UNKNOWN, UNKNOWN?INDICATION FOR USE: PYRE [Suspect]
     Active Substance: ACETAMINOPHEN
     Route: 065
  17. LEVOTHYROXINE SODIUM. [Suspect]
     Active Substance: LEVOTHYROXINE SODIUM
     Route: 065
  18. CHOLECALCIFEROL (PROVICTA?D) (CHOLECALCIFEROL), UNKNOWN [Suspect]
     Active Substance: CHOLECALCIFEROL
     Route: 065
  19. AMLODIPINE BESYLATE. [Suspect]
     Active Substance: AMLODIPINE BESYLATE
     Route: 065

REACTIONS (4)
  - Drug level increased [Unknown]
  - Electrocardiogram QT prolonged [Unknown]
  - Schizoaffective disorder [Unknown]
  - Drug interaction [Unknown]
